FAERS Safety Report 15244505 (Version 1)
Quarter: 2018Q4

REPORT INFORMATION
  Report Type: Spontaneous
  Country: CN (occurrence: CN)
  Receive Date: 20180806
  Receipt Date: 20180806
  Transmission Date: 20190204
  Serious: Yes (Other)
  Sender: FDA-Public Use
  Company Number: CN-PFIZER INC-2018309799

PATIENT
  Age: 86 Year
  Sex: Male
  Weight: 63 kg

DRUGS (2)
  1. ZE TONG (TORASEMIDE) [Suspect]
     Active Substance: TORSEMIDE
     Indication: OEDEMA PERIPHERAL
     Dosage: 10 MG, 1X/DAY
     Route: 042
     Dates: start: 20180601, end: 20180611
  2. LIPITOR [Suspect]
     Active Substance: ATORVASTATIN CALCIUM
     Indication: PLAQUE SHIFT
     Dosage: 20 MG, 1X/DAY
     Route: 048
     Dates: start: 20180601, end: 20180612

REACTIONS (3)
  - Pain [Not Recovered/Not Resolved]
  - Hypoaesthesia [Not Recovered/Not Resolved]
  - Peripheral swelling [Not Recovered/Not Resolved]

NARRATIVE: CASE EVENT DATE: 20180609
